FAERS Safety Report 9863808 (Version 4)
Quarter: 2014Q1

REPORT INFORMATION
  Report Type: Spontaneous
  Country: IT (occurrence: IT)
  Receive Date: 20140203
  Receipt Date: 20140224
  Transmission Date: 20141002
  Serious: Yes (Hospitalization)
  Sender: FDA-Public Use
  Company Number: IT-TEVA-458744ISR

PATIENT
  Age: 35 Year
  Sex: Male

DRUGS (9)
  1. BLEOMYCIN [Suspect]
     Indication: SEMINOMA
     Route: 065
  2. CISPLATIN [Suspect]
     Indication: SEMINOMA
     Route: 065
  3. ETOPOSIDE [Suspect]
     Indication: SEMINOMA
     Route: 065
  4. EMTRICITABINE, TENOFOVIR DISOPROXIL FUMARATE [Suspect]
     Indication: HIV INFECTION
     Route: 065
     Dates: start: 201203
  5. DARUNAVIR, RITONAVIR [Suspect]
     Indication: HIV INFECTION
     Route: 065
     Dates: start: 201203
  6. LOW MOLECULAR WEIGHT HEPARIN [Concomitant]
     Indication: THROMBOSIS PROPHYLAXIS
     Route: 065
  7. CEFTRIAXONE [Concomitant]
     Indication: HERPES SIMPLEX
     Route: 065
  8. FLUCONAZOLE [Concomitant]
     Indication: HERPES SIMPLEX
     Route: 065
  9. ACICLOVIR [Concomitant]
     Indication: HERPES SIMPLEX
     Route: 065

REACTIONS (2)
  - Streptococcal infection [Recovered/Resolved]
  - Immune system disorder [Recovering/Resolving]
